FAERS Safety Report 9605015 (Version 4)
Quarter: 2014Q1

REPORT INFORMATION
  Report Type: Spontaneous
  Country: US (occurrence: US)
  Receive Date: 20131008
  Receipt Date: 20140327
  Transmission Date: 20141002
  Serious: Yes (Hospitalization, Disabling, Other)
  Sender: FDA-Public Use
  Company Number: US-PFIZER INC-2013285062

PATIENT
  Age: 26 Year
  Sex: Female

DRUGS (4)
  1. ADVIL [Suspect]
     Indication: HEADACHE
     Dosage: 400 MG, 1X/DAY (200MG TWO TABLETS AT NIGHT)
     Route: 048
     Dates: start: 20101120
  2. ADVIL [Suspect]
     Indication: MYALGIA
     Dosage: 400 MG, 1X/DAY (200MG TWO TABLETS AT MORNING)
     Route: 048
     Dates: start: 20101121
  3. MOTRIN [Concomitant]
     Dosage: UNK
     Dates: start: 20101120
  4. TYLENOL [Concomitant]
     Dosage: UNK

REACTIONS (10)
  - Toxic epidermal necrolysis [Recovering/Resolving]
  - Mood altered [Unknown]
  - Depression [Not Recovered/Not Resolved]
  - Anxiety [Not Recovered/Not Resolved]
  - Sepsis [Not Recovered/Not Resolved]
  - Pulmonary oedema [Not Recovered/Not Resolved]
  - Asthma [Not Recovered/Not Resolved]
  - Acute lung injury [Not Recovered/Not Resolved]
  - Sinus tachycardia [Unknown]
  - Hyperkalaemia [Unknown]
